FAERS Safety Report 9543983 (Version 5)
Quarter: 2014Q2

REPORT INFORMATION
  Report Type: Report from Study
  Country: US (occurrence: US)
  Receive Date: 20130923
  Receipt Date: 20140418
  Transmission Date: 20141212
  Serious: No
  Sender: FDA-Public Use
  Company Number: US-ROCHE-1278936

PATIENT
  Age: 67 Year
  Sex: Female
  Weight: 74.46 kg

DRUGS (3)
  1. OMALIZUMAB [Suspect]
     Indication: ASTHMA
     Route: 058
     Dates: start: 20130820, end: 20130917
  2. LEVAQUIN [Concomitant]
     Route: 065
     Dates: start: 20130909, end: 20130918
  3. DUONEB [Concomitant]
     Route: 065
     Dates: start: 20130905

REACTIONS (1)
  - Bronchial secretion retention [Recovered/Resolved]
